FAERS Safety Report 25665484 (Version 5)
Quarter: 2025Q4

REPORT INFORMATION
  Report Type: Report from Study
  Country: GB (occurrence: GB)
  Receive Date: 20250811
  Receipt Date: 20251119
  Transmission Date: 20260118
  Serious: Yes (Hospitalization)
  Sender: NOVARTIS
  Company Number: GB-002147023-NVSC2025GB105546

PATIENT
  Age: 66 Year
  Sex: Male

DRUGS (3)
  1. COSENTYX [Suspect]
     Active Substance: SECUKINUMAB
     Indication: Psoriasis
     Dosage: 300 MG (LOADING DOSES)
     Route: 065
     Dates: start: 20200110
  2. COSENTYX [Suspect]
     Active Substance: SECUKINUMAB
     Dosage: 300 MG, QMO (22ND JULY)
     Route: 058
  3. COSENTYX [Suspect]
     Active Substance: SECUKINUMAB
     Dosage: UNK (LOADING DOSES)
     Route: 058
     Dates: start: 202506

REACTIONS (5)
  - Postoperative wound infection [Not Recovered/Not Resolved]
  - Infection [Unknown]
  - Device failure [Not Recovered/Not Resolved]
  - Needle issue [Unknown]
  - Impaired healing [Unknown]

NARRATIVE: CASE EVENT DATE: 20250630
